FAERS Safety Report 21013426 (Version 1)
Quarter: 2022Q2

REPORT INFORMATION
  Report Type: Spontaneous
  Country: US (occurrence: US)
  Receive Date: 20220627
  Receipt Date: 20220627
  Transmission Date: 20220720
  Serious: Yes (Other)
  Sender: FDA-Public Use
  Company Number: US-SA-SAC20220624001615

PATIENT
  Age: 28 Year
  Sex: Female

DRUGS (1)
  1. ZANTAC [Suspect]
     Active Substance: RANITIDINE HYDROCHLORIDE
     Indication: Dyspepsia
     Dosage: UNK, QD
     Dates: start: 199001, end: 201012

REACTIONS (3)
  - Breast cancer stage II [Recovered/Resolved]
  - Renal cancer stage II [Recovered/Resolved]
  - Ovarian cancer stage III [Recovered/Resolved]

NARRATIVE: CASE EVENT DATE: 19950101
